FAERS Safety Report 25259163 (Version 2)
Quarter: 2025Q4

REPORT INFORMATION
  Report Type: Spontaneous
  Country: EU (occurrence: EU)
  Receive Date: 20250501
  Receipt Date: 20251217
  Transmission Date: 20260118
  Serious: Yes (Other)
  Sender: ACCORD
  Company Number: None

PATIENT
  Age: 44 Year
  Sex: Male
  Weight: 48 kg

DRUGS (19)
  1. FLUOROURACIL [Suspect]
     Active Substance: FLUOROURACIL
     Indication: Pancreatic carcinoma
     Dates: start: 20250306, end: 20250306
  2. OXALIPLATIN [Suspect]
     Active Substance: OXALIPLATIN
     Indication: Pancreatic carcinoma
     Dates: start: 20250306, end: 20250306
  3. ALPRAZOLAM [Concomitant]
     Active Substance: ALPRAZOLAM
     Dosage: STRENGTH: 0.25 MG, SCORED TABLET
  4. INNOHEP [Concomitant]
     Active Substance: TINZAPARIN SODIUM
     Dosage: STRENGTH: 10,000 IU ANTI-XA/0.5 ML, (SC) IN PRE-FILLED?SYRINGE
  5. LANSOPRAZOLE [Concomitant]
     Active Substance: LANSOPRAZOLE
  6. LIDOCAINE [Concomitant]
     Active Substance: LIDOCAINE
  7. POLYETHYLENE GLYCOLS [Concomitant]
     Active Substance: POLYETHYLENE GLYCOLS
     Dosage: 10 G, IN SACHET
  8. METHYLPREDNISOLONE [Concomitant]
     Active Substance: METHYLPREDNISOLONE
     Dosage: STRENGTH: 120 MG, (IM-IV)
  9. MIDAZOLAM [Concomitant]
     Active Substance: MIDAZOLAM
     Dosage: STRENGTH: 1 MG/ML
  10. MORPHINE HYDROCHLORIDE [Concomitant]
     Active Substance: MORPHINE HYDROCHLORIDE
  11. NALOXEGOL [Concomitant]
     Active Substance: NALOXEGOL
     Dosage: STRENGTH: 25 MG
  12. NEOSTIGMINE [Concomitant]
     Active Substance: NEOSTIGMINE
     Dosage: STRENGTH: 5 MG/5 ML
  13. NEFOPAM [Concomitant]
     Active Substance: NEFOPAM
     Dosage: STRENGTH: 20 MG/2 ML
  14. ACETAMINOPHEN [Concomitant]
     Active Substance: ACETAMINOPHEN
     Dosage: STRENGTH: 10 MG/ML
  15. PIPERACILLIN AND TAZOBACTAM [Concomitant]
     Active Substance: PIPERACILLIN SODIUM\TAZOBACTAM SODIUM
  16. OCTREOTIDE ACETATE [Concomitant]
     Active Substance: OCTREOTIDE ACETATE
  17. SODIUM BICARBONATE [Concomitant]
     Active Substance: SODIUM BICARBONATE
  18. X PREP [Concomitant]
  19. VOGALENE [Concomitant]
     Active Substance: METOPIMAZINE
     Dosage: STRENGTH: 10 MG/1 ML, IN AMPOULE

REACTIONS (4)
  - Asthenia [Not Recovered/Not Resolved]
  - Nausea [Not Recovered/Not Resolved]
  - Paraesthesia oral [Not Recovered/Not Resolved]
  - Alopecia [Not Recovered/Not Resolved]

NARRATIVE: CASE EVENT DATE: 20250310
